FAERS Safety Report 8919627 (Version 1)
Quarter: 2012Q4

REPORT INFORMATION
  Report Type: 
  Country: SE (occurrence: SE)
  Receive Date: 20121121
  Receipt Date: 20121121
  Transmission Date: 20130627
  Serious: Yes (Hospitalization)
  Sender: FDA-Public Use
  Company Number: SE-PFIZER INC-2012288381

PATIENT
  Age: 65 Year
  Sex: Female
  Weight: 90.6 kg

DRUGS (5)
  1. GENOTROPIN [Suspect]
     Dosage: 0.1 mg, 1x/day,7 injections/week
     Route: 058
     Dates: start: 20020212
  2. LEVOTHYROXINE SODIUM [Concomitant]
     Indication: UNSPECIFIED HYPOTHYROIDISM
     Dosage: UNK
     Dates: start: 19910506
  3. ATENOLOL [Concomitant]
     Indication: ESSENTIAL HYPERTENSION
     Dosage: UNK
     Dates: start: 19931119
  4. LIPITOR [Concomitant]
     Indication: HYPERLIPIDEMIA
     Dosage: UNK
     Dates: start: 20010104
  5. TROMBYL [Concomitant]
     Indication: CEREBROVASCULAR ACCIDENT PROPHYLAXIS
     Dosage: UNK
     Dates: start: 20010712

REACTIONS (1)
  - Chest pain [Unknown]
